FAERS Safety Report 9728436 (Version 1)
Quarter: 2013Q4

REPORT INFORMATION
  Report Type: Spontaneous
  Country: CA (occurrence: CA)
  Receive Date: 20131204
  Receipt Date: 20131204
  Transmission Date: 20140711
  Serious: Yes (Hospitalization)
  Sender: FDA-Public Use
  Company Number: CA-JNJFOC-20131200380

PATIENT
  Age: 83 Year
  Sex: Female
  Weight: 78 kg

DRUGS (12)
  1. XARELTO [Suspect]
     Indication: PRODUCT USED FOR UNKNOWN INDICATION
     Route: 048
  2. AMLODIPINE [Concomitant]
     Route: 065
  3. ASA [Concomitant]
     Route: 065
  4. BUDESONIDE [Concomitant]
     Route: 065
  5. ZOPICLONE [Concomitant]
     Route: 065
  6. FUROSEMIDE [Concomitant]
     Route: 065
  7. HYDROMORPHONE [Concomitant]
     Route: 065
  8. PRAVASTATIN SODIUM [Concomitant]
     Route: 065
  9. RAMIPRIL [Concomitant]
     Route: 065
  10. RANITIDINE [Concomitant]
     Route: 065
  11. ALLOPURINOL [Concomitant]
     Route: 065
  12. CLOPIDOGREL [Concomitant]
     Route: 065

REACTIONS (1)
  - Pulmonary embolism [Unknown]
